FAERS Safety Report 10330581 (Version 2)
Quarter: 2014Q3

REPORT INFORMATION
  Report Type: Report from Study
  Country: JP (occurrence: JP)
  Receive Date: 20140722
  Receipt Date: 20140801
  Transmission Date: 20150326
  Serious: Yes (Life-Threatening)
  Sender: FDA-Public Use
  Company Number: JP-ROCHE-1437945

PATIENT
  Age: 42 Year
  Sex: Female

DRUGS (21)
  1. IMURAN [Concomitant]
     Active Substance: AZATHIOPRINE
     Dosage: DAILY
     Route: 048
     Dates: start: 20100123, end: 20120816
  2. SODIUM FERROUS CITRATE [Concomitant]
     Dosage: DAILY
     Route: 048
     Dates: start: 20090525
  3. TEPRENONE [Concomitant]
     Active Substance: TEPRENONE
     Dosage: DAILY
     Route: 048
     Dates: start: 20090525
  4. SENNA [Concomitant]
     Active Substance: SENNA LEAF\SENNOSIDES\SENNOSIDES A AND B
     Dosage: DAILY
     Route: 048
     Dates: start: 20121012
  5. PL [Concomitant]
     Active Substance: ACETAMINOPHEN\CAFFEINE\PROMETHAZINE\SALICYLAMIDE
     Dosage: DAILY
     Route: 048
     Dates: start: 20091228, end: 20121231
  6. CEFCAPENE PIVOXIL HYDROCHLORIDE [Concomitant]
     Active Substance: CEFCAPENE PIVOXIL HYDROCHLORIDE
     Dosage: DAILY
     Route: 048
     Dates: start: 20101122, end: 20131114
  7. MEDICON (DEXTROMETHORPHAN HYDROBROMIDE) [Concomitant]
     Active Substance: DEXTROMETHORPHAN HYDROBROMIDE
     Dosage: DAILY
     Route: 048
     Dates: start: 20111027, end: 20131114
  8. MEDROL [Concomitant]
     Active Substance: METHYLPREDNISOLONE
     Dosage: DAILY
     Route: 048
     Dates: start: 20060906, end: 20060920
  9. TACROLIMUS HYDRATE [Suspect]
     Active Substance: TACROLIMUS
     Route: 042
     Dates: start: 20060922, end: 20060925
  10. FEBURIC [Concomitant]
     Active Substance: FEBUXOSTAT
     Dosage: DAILY
     Route: 048
     Dates: start: 20120621
  11. THYRADIN [Concomitant]
     Active Substance: LEVOTHYROXINE
     Dosage: DAILY
     Route: 048
     Dates: start: 20060912
  12. RITUXIMAB [Suspect]
     Active Substance: RITUXIMAB
     Indication: RENAL TRANSPLANT
     Route: 042
     Dates: start: 20060913, end: 20060920
  13. METHYLPREDNISOLONE SODIUM SUCCINATE. [Concomitant]
     Active Substance: METHYLPREDNISOLONE SODIUM SUCCINATE
     Dosage: 125 MG/500 MG/32 MG, DAILY,
     Route: 042
     Dates: start: 20060920, end: 20060926
  14. MYCOPHENOLATE MOFETIL. [Suspect]
     Active Substance: MYCOPHENOLATE MOFETIL
     Indication: RENAL TRANSPLANT
     Dosage: 2 C, TWICE DAILY, PO
     Route: 048
     Dates: start: 20060906
  15. LOXOPROFEN SODIUM [Concomitant]
     Active Substance: LOXOPROFEN SODIUM
     Dosage: DAILY
     Route: 048
     Dates: start: 20091228, end: 20130401
  16. TACROLIMUS HYDRATE [Suspect]
     Active Substance: TACROLIMUS
     Indication: RENAL TRANSPLANT
     Dosage: 12 MG/10 MG/8 MG/6 MG/5 MG/4 MG
     Route: 048
     Dates: start: 20060918, end: 20120816
  17. ALFACALCIDOL [Concomitant]
     Active Substance: ALFACALCIDOL
     Dosage: DAILY
     Route: 048
     Dates: start: 20060912
  18. FUROSEMIDE. [Concomitant]
     Active Substance: FUROSEMIDE
     Dosage: DAILY
     Route: 048
     Dates: start: 20060912
  19. NU-LOTAN [Concomitant]
     Active Substance: LOSARTAN POTASSIUM
     Dosage: 75 MG/50 MG/25 MG/12.5 MG, DAILY,
     Route: 048
     Dates: start: 20060912
  20. SIMULECT [Concomitant]
     Active Substance: BASILIXIMAB
     Dosage: SINGLE DOSE
     Route: 042
     Dates: start: 20060921, end: 20060925
  21. MEDROL [Concomitant]
     Active Substance: METHYLPREDNISOLONE
     Dosage: DAILY
     Route: 048
     Dates: start: 20060927, end: 20120816

REACTIONS (1)
  - Colon cancer [Not Recovered/Not Resolved]

NARRATIVE: CASE EVENT DATE: 20120821
